FAERS Safety Report 9319636 (Version 2)
Quarter: 2014Q1

REPORT INFORMATION
  Report Type: Spontaneous
  Country: US (occurrence: US)
  Receive Date: 20130530
  Receipt Date: 20140127
  Transmission Date: 20141002
  Serious: Yes (Hospitalization)
  Sender: FDA-Public Use
  Company Number: US-GLAXOSMITHKLINE-A1017059A

PATIENT
  Sex: Female

DRUGS (1)
  1. FLOLAN [Suspect]
     Indication: COR PULMONALE CHRONIC
     Dosage: 44NGKM CONTINUOUS
     Route: 042
     Dates: start: 20061219

REACTIONS (6)
  - Dyspnoea [Unknown]
  - Headache [Unknown]
  - Rash [Unknown]
  - Hypotension [Unknown]
  - Skin infection [Unknown]
  - Medical device complication [Unknown]
